FAERS Safety Report 9226242 (Version 2)
Quarter: 2013Q2

REPORT INFORMATION
  Report Type: Spontaneous
  Country: GB (occurrence: GB)
  Receive Date: 20130411
  Receipt Date: 20130411
  Transmission Date: 20140414
  Serious: Yes (Other)
  Sender: FDA-Public Use
  Company Number: GB-NICOBRDEVP-2013-06396

PATIENT
  Sex: Female

DRUGS (1)
  1. LETROZOLE [Suspect]
     Indication: BREAST CANCER
     Dosage: 2.5 MG, UNKNOWN
     Route: 065
     Dates: start: 20131214

REACTIONS (6)
  - Carpal tunnel syndrome [Recovering/Resolving]
  - Paraesthesia [Recovering/Resolving]
  - Hot flush [Recovering/Resolving]
  - Pain [Recovering/Resolving]
  - Hypoaesthesia [Unknown]
  - Drug interaction [Unknown]
